FAERS Safety Report 10182564 (Version 1)
Quarter: 2014Q2

REPORT INFORMATION
  Report Type: Spontaneous
  Country: US (occurrence: None)
  Receive Date: 20140519
  Receipt Date: 20140519
  Transmission Date: 20141212
  Serious: Yes (Hospitalization)
  Sender: FDA-Public Use
  Company Number: None

PATIENT
  Age: 41 Year
  Sex: Male
  Weight: 134.27 kg

DRUGS (12)
  1. XARELTO [Suspect]
     Indication: PULMONARY EMBOLISM
     Route: 048
  2. AUGMENTIN [Concomitant]
  3. ALPRAZOLAM [Concomitant]
  4. ATORVASTATIN [Concomitant]
  5. AZELASTINE NASAL SPRAY [Concomitant]
  6. FAMOTADINE [Concomitant]
  7. FLUTICASONE NASAL SPRAY [Concomitant]
  8. GABAPENTIN [Concomitant]
  9. GUAIFENESIN WITH CODEINE SYR [Concomitant]
  10. METFORMIN [Concomitant]
  11. METOPROLOL [Concomitant]
  12. PATADAY EYE DROPS [Concomitant]

REACTIONS (3)
  - Blood blister [None]
  - Blister rupture [None]
  - Haemorrhage [None]
